FAERS Safety Report 5341040-8 (Version None)
Quarter: 2007Q2

REPORT INFORMATION
  Report Type: 
  Country: None (occurrence: None)
  Receive Date: 20070531
  Receipt Date: 20070521
  Transmission Date: 20071010
  Serious: Yes (Other)
  Sender: FDA-Public Use
  Company Number: DE-AMGEN-UK223705

PATIENT

DRUGS (1)
  1. NEUPOGEN [Suspect]
     Indication: PERIPHERAL BLOOD STEM CELL APHERESIS

REACTIONS (10)
  - ALLERGY TO VENOM [None]
  - ARTHRALGIA [None]
  - BRONCHITIS [None]
  - FIBROMYALGIA [None]
  - HERPES VIRUS INFECTION [None]
  - INFLUENZA LIKE ILLNESS [None]
  - PNEUMONIA PRIMARY ATYPICAL [None]
  - RASH [None]
  - TENOSYNOVITIS [None]
  - THYROIDITIS [None]
